FAERS Safety Report 4534092-6 (Version None)
Quarter: 2004Q4

REPORT INFORMATION
  Report Type: 
  Country: None (occurrence: None)
  Receive Date: 20041222
  Receipt Date: 20041210
  Transmission Date: 20050328
  Serious: Yes (Life-Threatening, Hospitalization, Other)
  Sender: FDA-Public Use
  Company Number: FR-JNJFOC-20041002958

PATIENT
  Age: 56 Year
  Sex: Female
  Weight: 58 kg

DRUGS (5)
  1. REMICADE [Suspect]
     Indication: RHEUMATOID ARTHRITIS
     Route: 042
  2. CORTANCYL [Suspect]
     Indication: RHEUMATOID ARTHRITIS
  3. CACIT D3 [Concomitant]
  4. CACIT D3 [Concomitant]
  5. KALEROID [Concomitant]

REACTIONS (1)
  - NECROTISING FASCIITIS [None]
